FAERS Safety Report 9380985 (Version 1)
Quarter: 2013Q3

REPORT INFORMATION
  Report Type: Report from Study
  Country: ID (occurrence: ID)
  Receive Date: 20130703
  Receipt Date: 20130703
  Transmission Date: 20140515
  Serious: Yes (Death)
  Sender: FDA-Public Use
  Company Number: ID-ROCHE-1244365

PATIENT
  Age: 67 Year
  Sex: Male
  Weight: 37.5 kg

DRUGS (1)
  1. MABTHERA [Suspect]
     Indication: NON-HODGKIN^S LYMPHOMA
     Dosage: 375 MG/M2/CYCLE, 3 WEEKLY
     Route: 040
     Dates: start: 201304, end: 20130626

REACTIONS (1)
  - Death [Fatal]
